FAERS Safety Report 7661614-9 (Version None)
Quarter: 2011Q3

REPORT INFORMATION
  Report Type: 
  Country: None (occurrence: None)
  Receive Date: 20110805
  Receipt Date: 20101116
  Transmission Date: 20111222
  Serious: No
  Sender: FDA-Public Use
  Company Number: US-ABBOTT-10P-163-0685718-00

PATIENT
  Sex: Female
  Weight: 38.59 kg

DRUGS (2)
  1. ATENOLOL [Concomitant]
     Indication: PRODUCT USED FOR UNKNOWN INDICATION
  2. NIASPAN [Suspect]
     Indication: HIGH DENSITY LIPOPROTEIN DECREASED
     Dosage: AT BEDTIME
     Dates: start: 20101114

REACTIONS (7)
  - MALAISE [None]
  - FEELING COLD [None]
  - NAUSEA [None]
  - PAIN IN EXTREMITY [None]
  - PAIN [None]
  - ARTHRALGIA [None]
  - VOMITING [None]
